FAERS Safety Report 5679963-2 (Version None)
Quarter: 2008Q1

REPORT INFORMATION
  Report Type: 
  Country: None (occurrence: None)
  Receive Date: 20080326
  Receipt Date: 20080324
  Transmission Date: 20080703
  Serious: Yes (Hospitalization, Other)
  Sender: FDA-Public Use
  Company Number: US-RB-000526-08

PATIENT
  Sex: Male
  Weight: 99.8 kg

DRUGS (2)
  1. SUBUTEX [Suspect]
     Route: 060
     Dates: start: 20080320, end: 20080320
  2. NALTREXONE HYDROCHLORIDE [Concomitant]
     Indication: PROPHYLAXIS
     Dosage: 50-100 MG
     Route: 048
     Dates: start: 20080319, end: 20080321

REACTIONS (3)
  - EYE PAIN [None]
  - OPTIC NEURITIS [None]
  - VISUAL ACUITY REDUCED [None]
